FAERS Safety Report 25836891 (Version 2)
Quarter: 2025Q4

REPORT INFORMATION
  Report Type: Spontaneous
  Country: CA (occurrence: CA)
  Receive Date: 20250923
  Receipt Date: 20251113
  Transmission Date: 20260117
  Serious: Yes (Other)
  Sender: PFIZER
  Company Number: CA-PFIZER INC-202500186695

PATIENT
  Age: 78 Year
  Sex: Female
  Weight: 105 kg

DRUGS (3)
  1. IXIFI [Suspect]
     Active Substance: INFLIXIMAB-QBTX
     Indication: Crohn^s disease
     Dosage: 1100 MG, EVERY 8 WEEKS
     Route: 042
     Dates: start: 20250528
  2. IXIFI [Suspect]
     Active Substance: INFLIXIMAB-QBTX
     Dosage: 1100 MG, EVERY 8 WEEKS
     Route: 042
     Dates: start: 20250724
  3. IXIFI [Suspect]
     Active Substance: INFLIXIMAB-QBTX
     Dosage: 1100 MG, EVERY 8 WEEKS
     Route: 042
     Dates: start: 20250918

REACTIONS (2)
  - Malignant nipple neoplasm [Not Recovered/Not Resolved]
  - Post procedural inflammation [Unknown]

NARRATIVE: CASE EVENT DATE: 20250101
